FAERS Safety Report 8266592-X (Version None)
Quarter: 2012Q2

REPORT INFORMATION
  Report Type: 
  Country: None (occurrence: None)
  Receive Date: 20120406
  Receipt Date: 20120323
  Transmission Date: 20120825
  Serious: Yes (Other)
  Sender: FDA-Public Use
  Company Number: FR-BAXTER-2012BAX000405

PATIENT
  Sex: Female

DRUGS (1)
  1. CYCLOPHOSPHAMIDE [Suspect]
     Indication: BREAST CANCER
     Route: 042

REACTIONS (8)
  - NEUTROPENIA [None]
  - TOXIC SKIN ERUPTION [None]
  - DIARRHOEA [None]
  - MUCOUS MEMBRANE DISORDER [None]
  - RASH [None]
  - ONYCHOLYSIS [None]
  - CONJUNCTIVITIS [None]
  - PALMAR-PLANTAR ERYTHRODYSAESTHESIA SYNDROME [None]
